FAERS Safety Report 12183667 (Version 1)
Quarter: 2016Q1

REPORT INFORMATION
  Report Type: Spontaneous
  Country: US (occurrence: US)
  Receive Date: 20160316
  Receipt Date: 20160316
  Transmission Date: 20160526
  Serious: No
  Sender: FDA-Public Use
  Company Number: US-PFIZER INC-2016135895

PATIENT
  Age: 49 Year
  Sex: Male

DRUGS (2)
  1. SUTENT [Suspect]
     Active Substance: SUNITINIB MALATE
     Dosage: UNK
     Dates: end: 201510
  2. SUTENT [Suspect]
     Active Substance: SUNITINIB MALATE
     Indication: RENAL CANCER STAGE IV
     Dosage: 37.5 MG (1 CAPSULE), CYCLIC (DAILY PARA 4 WEEKS ON AND 2 WEEKS OFF)
     Route: 048
     Dates: start: 20150904, end: 20160217

REACTIONS (5)
  - Rash [Not Recovered/Not Resolved]
  - Renal cancer stage IV [Not Recovered/Not Resolved]
  - Dysphagia [Not Recovered/Not Resolved]
  - Hair colour changes [Not Recovered/Not Resolved]
  - Disease progression [Not Recovered/Not Resolved]

NARRATIVE: CASE EVENT DATE: 20160125
